FAERS Safety Report 5718893-4 (Version None)
Quarter: 2008Q2

REPORT INFORMATION
  Report Type: 
  Country: None (occurrence: None)
  Receive Date: 20080425
  Receipt Date: 20080414
  Transmission Date: 20081010
  Serious: Yes (Death, Hospitalization)
  Sender: FDA-Public Use
  Company Number: GB-MERCK-0804GBR00078

PATIENT
  Age: 84 Year
  Sex: Female

DRUGS (2)
  1. FOSAMAX [Suspect]
     Indication: OSTEOPOROSIS
     Route: 048
  2. CALCIUM CARBONATE AND CHOLECALCIFEROL [Concomitant]
     Route: 065

REACTIONS (13)
  - ARTHRITIS [None]
  - CARPAL TUNNEL SYNDROME [None]
  - CONFUSIONAL STATE [None]
  - DEATH [None]
  - FALL [None]
  - GASTRITIS [None]
  - HYPOTHYROIDISM [None]
  - LUNG DISORDER [None]
  - NAUSEA [None]
  - NORMOCHROMIC NORMOCYTIC ANAEMIA [None]
  - OSTEOARTHRITIS [None]
  - POLYMYALGIA RHEUMATICA [None]
  - SPINAL FRACTURE [None]
